FAERS Safety Report 9684630 (Version 1)
Quarter: 2013Q4

REPORT INFORMATION
  Report Type: Spontaneous
  Country: US (occurrence: None)
  Receive Date: 20131108
  Receipt Date: 20131108
  Transmission Date: 20140711
  Serious: Yes (Hospitalization, Other)
  Sender: FDA-Public Use
  Company Number: DSU-2013-04977

PATIENT
  Sex: Male

DRUGS (1)
  1. TRIBENZOR [Suspect]
     Indication: HYPERTENSION
     Route: 048

REACTIONS (2)
  - Cerebrovascular accident [None]
  - Blood pressure increased [None]
